FAERS Safety Report 4457763-9 (Version None)
Quarter: 2004Q3

REPORT INFORMATION
  Report Type: 
  Country: None (occurrence: None)
  Receive Date: 20040903
  Receipt Date: 20040112
  Transmission Date: 20050211
  Serious: Yes (Life-Threatening, Hospitalization)
  Sender: FDA-Public Use
  Company Number: 2004-BP-00165RO

PATIENT
  Age: 37 Year
  Sex: Female

DRUGS (4)
  1. ORLAAM (LEVOMETHADYL ACETATE HCL ) ORAL SOLUTION, 10 [Suspect]
     Indication: DRUG DEPENDENCE
     Dosage: 60 MG (SEE TEXT, ONCE), PO
     Route: 048
  2. METHADONE HCL [Suspect]
     Indication: DRUG DEPENDENCE
     Dosage: 50 MG , PO
     Route: 048
  3. BENZODIAZEPINE (BENZODIAZEPINE DERIVATIVES) [Suspect]
  4. AMPHETAMINE (PSYCHOSTIMULANTS AND NOOTROPICS) [Suspect]

REACTIONS (1)
  - COMA [None]
